FAERS Safety Report 10160826 (Version 1)
Quarter: 2014Q2

REPORT INFORMATION
  Report Type: Spontaneous
  Country: JP (occurrence: JP)
  Receive Date: 20140508
  Receipt Date: 20140508
  Transmission Date: 20141212
  Serious: Yes (Other)
  Sender: FDA-Public Use
  Company Number: JP-WATSON-2014-09655

PATIENT
  Age: 41 Year
  Sex: Female

DRUGS (11)
  1. PACLITAXEL (UNKNOWN) [Suspect]
     Indication: OVARIAN CLEAR CELL CARCINOMA
     Dosage: UNK. SIX CYCLES OF CHEMOTHERAPY
     Route: 065
  2. CARBOPLATIN (UNKNOWN) [Suspect]
     Indication: OVARIAN CLEAR CELL CARCINOMA
     Dosage: UNK. SIX CYCLES OF CHEMOTHERAPY
     Route: 065
  3. IRINOTECAN (UNKNOWN) [Suspect]
     Indication: OVARIAN CLEAR CELL CARCINOMA
     Dosage: UNK.TWO CYCLES OF CHEMATHERAPY IN COMBINATION WITH MITOMYCIN C
     Route: 065
  4. IRINOTECAN (UNKNOWN) [Suspect]
     Dosage: UNK. THREE CYCLES IN COMBINATION WITH DOCETAXEL
     Route: 065
  5. MITOMYCIN (UNKNOWN) [Suspect]
     Indication: OVARIAN CLEAR CELL CARCINOMA
     Dosage: UNK. TWO CYCLES OF CHEMOTHERAPY
     Route: 065
  6. DOCETAXEL (UNKNOWN) [Suspect]
     Indication: OVARIAN CLEAR CELL CARCINOMA
     Dosage: UNK. THREE CYCLES OF CHEMOTHERAPY
     Route: 065
  7. OXALIPLATIN (UNKNOWN) [Suspect]
     Indication: OVARIAN CLEAR CELL CARCINOMA
     Dosage: 30 MG/M2. 3 WEEKS ON AND 1 WEEK OFF, EVERY 4 WEEKS
     Route: 065
  8. TRABECTEDIN [Suspect]
     Indication: OVARIAN CLEAR CELL CARCINOMA
     Dosage: 0.15 MG/M2. 3 WEEKS ON AND 1 WEEK OFF, EVERY 4 WEEKS
     Route: 065
  9. BEVACIZUMAB [Suspect]
     Indication: OVARIAN CLEAR CELL CARCINOMA
     Dosage: UNK. THREE CYCLES OF CHEMATHERAPY IN COMBINATION WITH DOXORUBICIN
     Route: 065
  10. BEVACIZUMAB [Suspect]
     Dosage: 2 MG/KG, 1/WEEK. 3 WEEKS ON AND 1 WEEK OFF, EVERY 4 WEEKS
     Route: 065
  11. TEMSIROLIMUS [Suspect]
     Indication: OVARIAN CLEAR CELL CARCINOMA
     Dosage: UNK. WEEKLY ADMINISTRATION
     Route: 065

REACTIONS (6)
  - Epistaxis [Unknown]
  - Fatigue [Unknown]
  - Pain of skin [Unknown]
  - Constipation [Unknown]
  - Off label use [Unknown]
  - Toxicity to various agents [None]
